FAERS Safety Report 21449948 (Version 1)
Quarter: 2022Q4

REPORT INFORMATION
  Report Type: Report from Study
  Country: US (occurrence: US)
  Receive Date: 20221013
  Receipt Date: 20221013
  Transmission Date: 20230113
  Serious: Yes (Hospitalization, Other)
  Sender: FDA-Public Use
  Company Number: US-BIOVITRUM-2022US08523

PATIENT
  Age: 35 Year
  Sex: Female

DRUGS (2)
  1. KINERET [Suspect]
     Active Substance: ANAKINRA
     Indication: Behcet^s syndrome
     Dates: start: 20220614
  2. KINERET [Suspect]
     Active Substance: ANAKINRA
     Dates: start: 201907

REACTIONS (9)
  - COVID-19 [Unknown]
  - Behcet^s syndrome [Unknown]
  - Nausea [Unknown]
  - Malaise [Unknown]
  - Somnolence [Unknown]
  - Injection site pain [Unknown]
  - Maternal exposure during pregnancy [Unknown]
  - Product dose omission issue [Unknown]
  - Off label use [Unknown]

NARRATIVE: CASE EVENT DATE: 20220614
